FAERS Safety Report 4737651-0 (Version None)
Quarter: 2005Q3

REPORT INFORMATION
  Report Type: 
  Country: None (occurrence: None)
  Receive Date: 20050809
  Receipt Date: 20050606
  Transmission Date: 20060218
  Serious: No
  Sender: FDA-Public Use
  Company Number: US-GLAXOSMITHKLINE-A0561360A

PATIENT
  Age: 59 Year
  Sex: Female

DRUGS (7)
  1. COMMIT [Suspect]
     Dates: start: 20050522
  2. PAXIL [Concomitant]
     Indication: DEPRESSION
  3. SEROQUEL [Concomitant]
     Indication: DEPRESSION
  4. PLAVIX [Concomitant]
  5. TOPROL-XL [Concomitant]
  6. ZOCOR [Concomitant]
  7. LIPITOR [Concomitant]

REACTIONS (1)
  - VOMITING PROJECTILE [None]
